FAERS Safety Report 7364376-8 (Version None)
Quarter: 2011Q1

REPORT INFORMATION
  Report Type: 
  Country: None (occurrence: None)
  Receive Date: 20110321
  Receipt Date: 20110317
  Transmission Date: 20110831
  Serious: Yes (Other)
  Sender: FDA-Public Use
  Company Number: GB-PFIZER INC-2011003761

PATIENT
  Age: 64 Year
  Sex: Male
  Weight: 89 kg

DRUGS (3)
  1. CHAMPIX [Suspect]
     Indication: SMOKING CESSATION THERAPY
     Dosage: 1 MG, 2X/DAY
     Dates: start: 20101124, end: 20101229
  2. VENTOLIN [Concomitant]
     Indication: CHRONIC OBSTRUCTIVE PULMONARY DISEASE
     Dosage: 100 UG, 2X/DAY
     Route: 055
     Dates: start: 20101115
  3. CLENIL [Concomitant]
     Indication: CHRONIC OBSTRUCTIVE PULMONARY DISEASE
     Dosage: 100 UG, 2X/DAY
     Route: 055
     Dates: start: 20101115

REACTIONS (7)
  - ANXIETY [None]
  - DIZZINESS [None]
  - PANIC REACTION [None]
  - NAUSEA [None]
  - CHEST DISCOMFORT [None]
  - HYPERVENTILATION [None]
  - HOT FLUSH [None]
